FAERS Safety Report 9587508 (Version 3)
Quarter: 2013Q4

REPORT INFORMATION
  Report Type: Spontaneous
  Country: US (occurrence: US)
  Receive Date: 20131003
  Receipt Date: 20131125
  Transmission Date: 20140711
  Serious: Yes (Other)
  Sender: FDA-Public Use
  Company Number: US-BAYER-2013-119538

PATIENT
  Age: 31 Year
  Sex: Female
  Weight: 49 kg

DRUGS (5)
  1. MIRENA [Suspect]
     Indication: CONTRACEPTION
     Dosage: 20 ?G/D, CONT
     Route: 015
     Dates: start: 20120308, end: 20131018
  2. VITAMIN C [Concomitant]
     Indication: NUTRITIONAL SUPPLEMENTATION
     Dosage: 1000 MG, QD
     Dates: start: 2012
  3. VITAMIN D3 [Concomitant]
     Indication: NUTRITIONAL SUPPLEMENTATION
     Dosage: 1000 U, QD
     Dates: start: 201304
  4. OMEGA 3 FATTY ACIDS [Concomitant]
     Dosage: 1200 MG, QOD
     Dates: start: 2010
  5. PRENATAL VITAMINS [VIT C,B5,B12,D2,B3,B6,RETINOL PALMIT,B2,B1 MONO [Concomitant]
     Indication: NUTRITIONAL SUPPLEMENTATION
     Dosage: 1 DF, QD
     Dates: start: 2008

REACTIONS (6)
  - Dysfunctional uterine bleeding [Not Recovered/Not Resolved]
  - Device physical property issue [Recovered/Resolved]
  - Abdominal discomfort [Recovered/Resolved]
  - Feeling abnormal [Recovered/Resolved]
  - Device issue [None]
  - Depressed mood [None]
